FAERS Safety Report 9531987 (Version 1)
Quarter: 2013Q3

REPORT INFORMATION
  Report Type: Not Available
  Country: ES (occurrence: ES)
  Receive Date: 20130918
  Receipt Date: 20130918
  Transmission Date: 20140515
  Serious: Yes (Hospitalization)
  Sender: FDA-Public Use
  Company Number: ES-NAPPMUNDI-GBR-2013-0015670

PATIENT
  Age: 43 Year
  Sex: Female

DRUGS (1)
  1. MST 200 CONTINUS, COMPRIMIDOS DE 200 MG [Suspect]
     Indication: CANCER PAIN
     Dosage: 200 MG, BID
     Route: 048
     Dates: start: 201302

REACTIONS (1)
  - Intestinal obstruction [Recovered/Resolved]
